FAERS Safety Report 20925886 (Version 1)
Quarter: 2022Q2

REPORT INFORMATION
  Report Type: Spontaneous
  Country: US (occurrence: None)
  Receive Date: 20220607
  Receipt Date: 20220607
  Transmission Date: 20220721
  Serious: Yes (Hospitalization)
  Sender: FDA-Public Use
  Company Number: None

PATIENT
  Age: 73 Year
  Sex: Male
  Weight: 70.1 kg

DRUGS (2)
  1. AZACITIDINE [Suspect]
     Active Substance: AZACITIDINE
     Dates: end: 20220602
  2. VENETOCLAX [Suspect]
     Active Substance: VENETOCLAX
     Dates: end: 20220606

REACTIONS (3)
  - Pyrexia [None]
  - Lung opacity [None]
  - Tachypnoea [None]

NARRATIVE: CASE EVENT DATE: 20220602
